FAERS Safety Report 4917847-5 (Version None)
Quarter: 2006Q1

REPORT INFORMATION
  Report Type: 
  Country: None (occurrence: None)
  Receive Date: 20060215
  Receipt Date: 20060203
  Transmission Date: 20060701
  Serious: Yes (Other)
  Sender: FDA-Public Use
  Company Number: B0410299A

PATIENT
  Age: 78 Year
  Sex: Male

DRUGS (10)
  1. LANOXIN [Suspect]
  2. ASPIRIN [Suspect]
  3. NICOUMALONE (NICOUMALONE) [Suspect]
  4. PERINDOPRIL (PERINDOPRIL) [Suspect]
  5. BUMETANIDE [Suspect]
  6. SPIRONOLACTONE [Suspect]
  7. ATENOLOL [Concomitant]
  8. SIMVASTATIN [Concomitant]
  9. DUTASTERIDE [Concomitant]
  10. NADROPARINE CALCIUM [Concomitant]

REACTIONS (8)
  - ANAEMIA [None]
  - BLOOD PRESSURE DIASTOLIC DECREASED [None]
  - DYSPNOEA [None]
  - GASTRIC HAEMORRHAGE [None]
  - HEART RATE IRREGULAR [None]
  - HYPERKALAEMIA [None]
  - INTERNATIONAL NORMALISED RATIO INCREASED [None]
  - RENAL IMPAIRMENT [None]
